FAERS Safety Report 8716206 (Version 2)
Quarter: 2013Q4

REPORT INFORMATION
  Report Type: Report from Study
  Country: US (occurrence: US)
  Receive Date: 20120809
  Receipt Date: 20131108
  Transmission Date: 20140711
  Serious: Yes (Other)
  Sender: FDA-Public Use
  Company Number: US-009507513-2009SP030031

PATIENT
  Age: 29 Year
  Sex: Female
  Weight: 101.61 kg

DRUGS (6)
  1. PEG-INTRON [Suspect]
     Indication: HEPATITIS C
     Dosage: UNK UNK, QW
     Route: 058
     Dates: start: 20080708, end: 20090612
  2. REBETOL [Suspect]
     Indication: HEPATITIS C
     Dosage: UNKNOWN
     Route: 048
     Dates: start: 20080708, end: 20090612
  3. LEVOTHYROXINE SODIUM [Concomitant]
     Dosage: 100 ?G, QD
     Route: 048
  4. OMEPRAZOLE [Concomitant]
     Dosage: 20 MG, QD
     Route: 048
  5. CITALOPRAM [Concomitant]
     Dosage: 20 MG, TID
     Route: 048
  6. ADVIL [Concomitant]
     Dosage: 200 MG, PRN
     Route: 048

REACTIONS (2)
  - Abortion spontaneous [Unknown]
  - Maternal exposure before pregnancy [Unknown]
